FAERS Safety Report 6594245-2 (Version None)
Quarter: 2010Q1

REPORT INFORMATION
  Report Type: 
  Country: None (occurrence: None)
  Receive Date: 20100222
  Receipt Date: 20100216
  Transmission Date: 20100710
  Serious: Yes (Hospitalization)
  Sender: FDA-Public Use
  Company Number: CA-BRISTOL-MYERS SQUIBB COMPANY-14839443

PATIENT
  Age: 48 Year
  Sex: Male

DRUGS (4)
  1. CISPLATIN [Suspect]
     Indication: NON-HODGKIN'S LYMPHOMA
     Route: 042
     Dates: start: 20090730, end: 20090910
  2. GEMZAR [Suspect]
     Indication: NON-HODGKIN'S LYMPHOMA
     Route: 042
     Dates: start: 20090730, end: 20090910
  3. DEXAMETHASONE [Suspect]
     Indication: NON-HODGKIN'S LYMPHOMA
     Route: 065
     Dates: start: 20090730, end: 20090910
  4. RITUXIMAB [Suspect]
     Indication: NON-HODGKIN'S LYMPHOMA
     Route: 042
     Dates: start: 20090730, end: 20090910

REACTIONS (1)
  - AORTITIS [None]
